FAERS Safety Report 12315371 (Version 2)
Quarter: 2016Q2

REPORT INFORMATION
  Report Type: Other
  Country: CH (occurrence: CH)
  Receive Date: 20160428
  Receipt Date: 20160616
  Transmission Date: 20160815
  Serious: Yes (Hospitalization)
  Sender: FDA-Public Use
  Company Number: CH-PFM-CH-2016-1390

PATIENT
  Age: 63 Year
  Sex: Male
  Weight: 104 kg

DRUGS (14)
  1. PARAPLATIN [Suspect]
     Active Substance: CARBOPLATIN
     Dosage: 625 MG
     Route: 042
     Dates: end: 20160323
  2. DAFALGAN [Suspect]
     Active Substance: ACETAMINOPHEN
     Indication: PRODUCT USED FOR UNKNOWN INDICATION
     Dosage: 1000 MG, PRN (UNTIL 3 G PER DAY)
     Route: 048
     Dates: end: 20160314
  3. XARELTO [Concomitant]
     Active Substance: RIVAROXABAN
     Indication: PRODUCT USED FOR UNKNOWN INDICATION
     Dosage: 20 MG, QD (1/DAY) (DRUG TEMPORARLY INTERRUPTED FROM 17 TO 22 MARCH)
     Route: 048
     Dates: start: 20151207
  4. BELOC [Concomitant]
     Active Substance: METOPROLOL TARTRATE
     Indication: PRODUCT USED FOR UNKNOWN INDICATION
     Dosage: 50 MG, QD (1/DAY),  (DRUG TEMPORARLY INTERRUPTED FROM 17 TO 22 MARCH)
     Route: 048
  5. PANTOZOL [Concomitant]
     Active Substance: PANTOPRAZOLE SODIUM
     Indication: PRODUCT USED FOR UNKNOWN INDICATION
     Dosage: 40 MG, QD (1/DAY),  (DRUG TEMPORARLY INTERRUPTED FROM 17 TO 22 MARCH)
     Route: 048
  6. TOREM [Concomitant]
     Active Substance: TORSEMIDE
     Dosage: 5 MG, QD (1/DAY)
     Route: 048
  7. SYMBICORT [Concomitant]
     Active Substance: BUDESONIDE\FORMOTEROL FUMARATE DIHYDRATE
     Indication: PRODUCT USED FOR UNKNOWN INDICATION
     Dosage: 400 ?G, BID (2/DAY)
     Route: 055
  8. APROVEL [Concomitant]
     Active Substance: IRBESARTAN
     Indication: PRODUCT USED FOR UNKNOWN INDICATION
     Dosage: 150 MG, QD (1/DAY),  (DRUG TEMPORARLY INTERRUPTED FROM 17 TO 22 MARCH)
     Route: 048
  9. NAVELBINE [Suspect]
     Active Substance: VINORELBINE TARTRATE
     Indication: ADENOSQUAMOUS CELL LUNG CANCER STAGE I
     Dosage: 50 MG, 2 PER 8 DAYS, ON D1/D8
     Route: 042
     Dates: start: 20160302, end: 20160309
  10. ZANIDIP [Concomitant]
     Active Substance: LERCANIDIPINE HYDROCHLORIDE
     Indication: PRODUCT USED FOR UNKNOWN INDICATION
     Dosage: 10 MG, QD (1/DAY),  (DRUG REPLACED BY AMLODIPINE FROM 17 TO 22 MARCH)
     Route: 048
  11. PRAVASTATIN [Concomitant]
     Active Substance: PRAVASTATIN\PRAVASTATIN SODIUM
     Indication: PRODUCT USED FOR UNKNOWN INDICATION
     Dosage: 20 MG, QD (1/DAY), (DRUG TEMPORARLY INTERRUPTED FROM 17 TO 22 MARCH)
     Route: 048
  12. PARAPLATIN [Suspect]
     Active Substance: CARBOPLATIN
     Indication: ADENOSQUAMOUS CELL LUNG CANCER
     Dosage: 595 MG, 2 PER 22 DAYS,ON D1
     Route: 042
     Dates: start: 20160302
  13. ALDACTONE [Concomitant]
     Active Substance: SPIRONOLACTONE
     Indication: PRODUCT USED FOR UNKNOWN INDICATION
     Dosage: 25 MG, QD (1/DAY),  (DRUG TEMPORARLY INTERRUPTED FROM 17 TO 22 MARCH)
     Route: 048
  14. AMLODIPIN [Concomitant]
     Active Substance: AMLODIPINE BESYLATE
     Indication: PRODUCT USED FOR UNKNOWN INDICATION
     Dosage: 10 MG, QD (1/DAY)
     Route: 048
     Dates: start: 20160317, end: 20160322

REACTIONS (3)
  - Hyperbilirubinaemia [Recovered/Resolved]
  - Ocular icterus [Recovered/Resolved]
  - Liver injury [Recovering/Resolving]

NARRATIVE: CASE EVENT DATE: 20160316
